FAERS Safety Report 9958275 (Version 2)
Quarter: 2014Q1

REPORT INFORMATION
  Report Type: Report from Study
  Country: US (occurrence: US)
  Receive Date: 20140304
  Receipt Date: 20140304
  Transmission Date: 20141002
  Serious: No
  Sender: FDA-Public Use
  Company Number: US-ABBVIE-12P-163-1018677-00

PATIENT
  Age: 30 Year
  Sex: Female
  Weight: 108.96 kg

DRUGS (5)
  1. HUMIRA [Suspect]
     Indication: PSORIASIS
     Route: 058
     Dates: start: 20121206
  2. HUMIRA [Suspect]
     Indication: PSORIASIS
  3. VITAMIN D [Concomitant]
     Indication: PRODUCT USED FOR UNKNOWN INDICATION
     Dosage: DAILY
  4. VITAMIN B12 [Concomitant]
     Indication: PRODUCT USED FOR UNKNOWN INDICATION
     Dosage: DAILY
  5. ECHINACEA [Concomitant]
     Indication: PRODUCT USED FOR UNKNOWN INDICATION
     Dosage: DAILY

REACTIONS (7)
  - Contusion [Not Recovered/Not Resolved]
  - Injection site pain [Recovering/Resolving]
  - Injection site pain [Not Recovered/Not Resolved]
  - Wrong technique in drug usage process [Not Recovered/Not Resolved]
  - Flank pain [Not Recovered/Not Resolved]
  - Wrong technique in drug usage process [Unknown]
  - Injection site pruritus [Recovering/Resolving]
